FAERS Safety Report 23616270 (Version 6)
Quarter: 2025Q1

REPORT INFORMATION
  Report Type: Spontaneous
  Country: US (occurrence: US)
  Receive Date: 20240311
  Receipt Date: 20250304
  Transmission Date: 20250409
  Serious: Yes (Disabling, Other)
  Sender: AMGEN
  Company Number: US-HORIZON THERAPEUTICS-HZN-2024-002757

PATIENT
  Age: 66 Year
  Sex: Male
  Weight: 142 kg

DRUGS (23)
  1. TEPEZZA [Suspect]
     Active Substance: TEPROTUMUMAB-TRBW
     Indication: Graves^ disease
     Route: 042
     Dates: start: 20220131, end: 20220131
  2. TEPEZZA [Suspect]
     Active Substance: TEPROTUMUMAB-TRBW
     Indication: Endocrine ophthalmopathy
     Dosage: 2400 MILLIGRAM, Q3WK,  (SECOND INFUSION)
     Route: 042
     Dates: start: 20220221, end: 20220221
  3. TEPEZZA [Suspect]
     Active Substance: TEPROTUMUMAB-TRBW
     Dosage: 2800 MILLIGRAM, Q3WK, (THIRD INFUSION)
     Route: 042
     Dates: start: 20220314, end: 20220314
  4. TEPEZZA [Suspect]
     Active Substance: TEPROTUMUMAB-TRBW
     Dosage: 2780 MILLIGRAM, Q3WK, (FOURTH INFUSION)
     Route: 042
     Dates: start: 20220404, end: 20220404
  5. TEPEZZA [Suspect]
     Active Substance: TEPROTUMUMAB-TRBW
     Dosage: 2800 MILLIGRAM, Q3WK, (FIFTH INFUSION)
     Route: 042
     Dates: start: 20220425, end: 20220425
  6. TEPEZZA [Suspect]
     Active Substance: TEPROTUMUMAB-TRBW
     Dosage: 2760 MILLIGRAM, Q3WK, (SIXTH INFUSION)
     Route: 042
     Dates: start: 20220516, end: 20220516
  7. TEPEZZA [Suspect]
     Active Substance: TEPROTUMUMAB-TRBW
     Dosage: 2720 MILLIGRAM, Q3WK, (SEVENTH INFUSION)
     Route: 042
     Dates: start: 20220606, end: 20220606
  8. TEPEZZA [Suspect]
     Active Substance: TEPROTUMUMAB-TRBW
     Route: 042
     Dates: start: 20220627, end: 20220627
  9. RESTASIS [Concomitant]
     Active Substance: CYCLOSPORINE
     Dosage: 1 DROP, BID
     Route: 047
     Dates: start: 20211202
  10. VITAMIN D [Concomitant]
     Active Substance: VITAMIN D NOS
     Dosage: UNK, QD
     Route: 065
  11. TYLENOL [Concomitant]
     Active Substance: ACETAMINOPHEN
     Indication: Endocrine ophthalmopathy
     Dosage: 650 MILLIGRAM, Q4H, (TAKE 2 TABLETS (650 MG TOTAL))
     Route: 048
  12. TYLENOL [Concomitant]
     Active Substance: ACETAMINOPHEN
     Indication: Pain
  13. Os Cal [Concomitant]
     Indication: Endocrine ophthalmopathy
     Dosage: 500 MILLIGRAM, TID
     Route: 048
  14. VITAMIN D3 [Concomitant]
     Active Substance: CHOLECALCIFEROL
     Indication: Endocrine ophthalmopathy
     Dosage: UNK, QD (1 TABLET)
     Route: 048
  15. Romycin [Concomitant]
     Indication: Endocrine ophthalmopathy
     Dosage: UNK, Q8H
     Route: 047
  16. PEPCID [Concomitant]
     Active Substance: FAMOTIDINE
     Indication: Endocrine ophthalmopathy
     Dosage: 20 MILLIGRAM, Q12H
     Route: 048
  17. NEILMED SINUS RINSE [Concomitant]
     Active Substance: SODIUM BICARBONATE\SODIUM CHLORIDE
     Indication: Endocrine ophthalmopathy
     Dosage: UNK, BID ADMINISTER 1 PACKET INTO AFFECTED NOSTRIL(S)
     Route: 065
  18. ROXICODONE [Concomitant]
     Active Substance: OXYCODONE HYDROCHLORIDE
     Indication: Pain
     Dosage: 5 MILLIGRAM, Q4H
     Route: 048
  19. ROXICODONE [Concomitant]
     Active Substance: OXYCODONE HYDROCHLORIDE
     Indication: Endocrine ophthalmopathy
  20. DELTASONE [Concomitant]
     Active Substance: PREDNISONE
     Indication: Endocrine ophthalmopathy
     Dosage: 40 MILLIGRAM, QD, TAKE 2 TABLETS (40 MILLIGRAM TOTAL)
     Route: 048
  21. OCEAN SALINE NASAL SPRAY [Concomitant]
     Active Substance: SODIUM CHLORIDE
     Indication: Endocrine ophthalmopathy
     Route: 045
  22. OCEAN SALINE NASAL SPRAY [Concomitant]
     Active Substance: SODIUM CHLORIDE
     Indication: Nasal congestion
  23. TIMOPTIC [Concomitant]
     Active Substance: TIMOLOL MALEATE
     Route: 047

REACTIONS (17)
  - Deafness neurosensory [Not Recovered/Not Resolved]
  - Disability [Not Recovered/Not Resolved]
  - Physical disability [Not Recovered/Not Resolved]
  - Concomitant disease aggravated [Not Recovered/Not Resolved]
  - Deformity [Not Recovered/Not Resolved]
  - Injury [Not Recovered/Not Resolved]
  - Pain [Not Recovered/Not Resolved]
  - Emotional distress [Not Recovered/Not Resolved]
  - Impaired quality of life [Not Recovered/Not Resolved]
  - Economic problem [Not Recovered/Not Resolved]
  - Discomfort [Not Recovered/Not Resolved]
  - Anxiety [Not Recovered/Not Resolved]
  - Product quality issue [Unknown]
  - Gait disturbance [Unknown]
  - Lacrimation increased [Unknown]
  - Muscle spasms [Recovered/Resolved]
  - Tinnitus [Not Recovered/Not Resolved]

NARRATIVE: CASE EVENT DATE: 20220401
